FAERS Safety Report 24772352 (Version 1)
Quarter: 2024Q4

REPORT INFORMATION
  Report Type: Spontaneous
  Country: RO (occurrence: RO)
  Receive Date: 20241224
  Receipt Date: 20241224
  Transmission Date: 20250115
  Serious: Yes (Life-Threatening, Hospitalization)
  Sender: PFIZER
  Company Number: RO-ROMPHARMP-202412062

PATIENT
  Age: 34 Week
  Sex: Male

DRUGS (4)
  1. TIGECYCLINE [Suspect]
     Active Substance: TIGECYCLINE
     Indication: Klebsiella sepsis
     Route: 042
  2. COLISTIN [Suspect]
     Active Substance: COLISTIN
     Indication: Klebsiella sepsis
     Route: 042
  3. MEROPENEM [Suspect]
     Active Substance: MEROPENEM
     Indication: Klebsiella sepsis
     Route: 042
  4. UNSPECIFIED INGREDIENT [Suspect]
     Active Substance: UNSPECIFIED INGREDIENT
     Indication: Klebsiella sepsis
     Route: 042

REACTIONS (3)
  - Off label use [Recovered/Resolved]
  - Drug ineffective [Recovered/Resolved]
  - Bacterial infection [Recovered/Resolved]
